FAERS Safety Report 5797847-6 (Version None)
Quarter: 2008Q3

REPORT INFORMATION
  Report Type: 
  Country: None (occurrence: None)
  Receive Date: 20080702
  Receipt Date: 20080626
  Transmission Date: 20090109
  Serious: Yes (Other)
  Sender: FDA-Public Use
  Company Number: US-BAYER-200825784NA

PATIENT
  Sex: Male

DRUGS (9)
  1. NEXAVAR [Suspect]
     Indication: THYROID CANCER
     Dosage: TOTAL DAILY DOSE: 800 MG  UNIT DOSE: 200 MG
     Route: 048
     Dates: start: 20080501, end: 20080601
  2. NEXAVAR [Suspect]
     Dosage: TOTAL DAILY DOSE: 400 MG  UNIT DOSE: 200 MG
     Route: 048
     Dates: start: 20080622, end: 20080623
  3. NEXAVAR [Suspect]
     Dosage: TOTAL DAILY DOSE: 800 MG  UNIT DOSE: 200 MG
     Route: 048
     Dates: start: 20080624
  4. BENICAR [Concomitant]
     Indication: HYPERTENSION
  5. NORVASC [Concomitant]
     Indication: HYPERTENSION
  6. PROVIGIL [Concomitant]
     Indication: FATIGUE
     Dates: start: 20080501, end: 20080601
  7. PROVIGIL [Concomitant]
     Dates: start: 20080624
  8. CALCITRIOL [Concomitant]
  9. CALCITRIOL [Concomitant]
     Dates: start: 20080601

REACTIONS (4)
  - BLOOD CREATININE INCREASED [None]
  - BLOOD PRESSURE INCREASED [None]
  - HYPOCALCAEMIA [None]
  - NEPHROLITHIASIS [None]
